FAERS Safety Report 5823029-5 (Version None)
Quarter: 2008Q3

REPORT INFORMATION
  Report Type: 
  Country: None (occurrence: None)
  Receive Date: 20080725
  Receipt Date: 20080715
  Transmission Date: 20090109
  Serious: Yes (Other)
  Sender: FDA-Public Use
  Company Number: BR-ROCHE-576796

PATIENT
  Sex: Female

DRUGS (6)
  1. FLANAX [Suspect]
     Dosage: FLANAX-250MG
     Route: 048
     Dates: start: 20080712
  2. FLANAX [Suspect]
     Dosage: FLANAX-250MG, LOT NO-75836
     Route: 048
     Dates: start: 20080701
  3. INSULIN [Concomitant]
     Route: 058
     Dates: start: 19980101
  4. GLUCOFORMIN [Concomitant]
     Route: 048
     Dates: start: 19700101
  5. MODURETIC 5-50 [Concomitant]
     Indication: HYPERTENSION
     Route: 048
     Dates: start: 19980101
  6. ATENOLOL [Concomitant]
     Route: 048
     Dates: start: 19980101

REACTIONS (4)
  - BLOOD GLUCOSE INCREASED [None]
  - BLOOD PRESSURE INCREASED [None]
  - BURNING SENSATION [None]
  - HEADACHE [None]
